FAERS Safety Report 5660066-8 (Version None)
Quarter: 2008Q1

REPORT INFORMATION
  Report Type: 
  Country: None (occurrence: None)
  Receive Date: 20080311
  Receipt Date: 20070831
  Transmission Date: 20080703
  Serious: No
  Sender: FDA-Public Use
  Company Number: US-BAYER-200712817BCC

PATIENT
  Age: 73 Year
  Sex: Female
  Weight: 64 kg

DRUGS (4)
  1. ALEVE [Suspect]
     Indication: MYALGIA
     Dosage: TOTAL DAILY DOSE: 880 MG  UNIT DOSE: 220 MG
     Route: 048
     Dates: start: 20070831
  2. CIPRO [Concomitant]
  3. BLOOD PRESSURE MEDICATION [Concomitant]
  4. CHOLESTEROL MEDICATION [Concomitant]

REACTIONS (1)
  - NO ADVERSE EVENT [None]
